FAERS Safety Report 8621962-2 (Version None)
Quarter: 2012Q3

REPORT INFORMATION
  Report Type: 
  Country: None (occurrence: None)
  Receive Date: 20120823
  Receipt Date: 20120823
  Transmission Date: 20120928
  Serious: Yes (Hospitalization)
  Sender: FDA-Public Use
  Company Number: None

PATIENT
  Sex: Male
  Weight: 75.2 kg

DRUGS (9)
  1. PRILOSEC [Concomitant]
  2. POTASSIUM CHLORIDE [Concomitant]
  3. ERLOTINIB HYDROCHLORIDE [Suspect]
     Dosage: 75MG, QD, PO
     Route: 048
     Dates: start: 20120315
  4. METOPROLOL TARTRATE [Concomitant]
  5. PPE [Suspect]
     Dosage: 200MG, TID, PO
     Route: 048
     Dates: start: 20120321
  6. ASPIRIN [Concomitant]
  7. PROCARDIA [Concomitant]
  8. LASIX [Concomitant]
  9. ZOCOR [Concomitant]

REACTIONS (1)
  - DYSPNOEA [None]
